FAERS Safety Report 8984601 (Version 1)
Quarter: 2012Q4

REPORT INFORMATION
  Report Type: 
  Country: US (occurrence: US)
  Receive Date: 20121225
  Receipt Date: 20121225
  Transmission Date: 20130627
  Serious: No
  Sender: FDA-Public Use
  Company Number: US-ASTRAZENECA-2012SE93029

PATIENT
  Age: 52 Year
  Sex: Male
  Weight: 82.1 kg

DRUGS (7)
  1. VIMOVO [Suspect]
     Indication: PAIN
     Dosage: 500 MG/20 MG DAILY
     Route: 048
     Dates: start: 20121031, end: 201211
  2. ATORVASTATIN [Concomitant]
     Indication: BLOOD CHOLESTEROL INCREASED
  3. CLONAZEPAM [Concomitant]
     Indication: ANXIETY
  4. TIAZAC [Concomitant]
     Indication: HYPERTENSION
  5. CYMBALTA [Concomitant]
     Indication: DEPRESSION
  6. TRAZADONE [Concomitant]
     Indication: DEPRESSION
  7. TRAZADONE [Concomitant]
     Indication: SLEEP DISORDER

REACTIONS (5)
  - Asthenia [Recovered/Resolved]
  - Abdominal pain [Recovered/Resolved]
  - Vision blurred [Not Recovered/Not Resolved]
  - Disturbance in attention [Recovered/Resolved]
  - Dyspnoea [Recovered/Resolved]
